FAERS Safety Report 12777008 (Version 1)
Quarter: 2016Q3

REPORT INFORMATION
  Report Type: Report from Study
  Country: DE (occurrence: DE)
  Receive Date: 20160923
  Receipt Date: 20160923
  Transmission Date: 20161109
  Serious: Yes (Hospitalization)
  Sender: FDA-Public Use
  Company Number: US-ASTRAZENECA-2016SF01037

PATIENT
  Age: 3 Month
  Sex: Female
  Weight: .8 kg

DRUGS (6)
  1. SYNAGIS [Suspect]
     Active Substance: PALIVIZUMAB
     Indication: PREMATURE BABY
     Dosage: 45 MG
     Route: 030
     Dates: start: 20110204, end: 20110204
  2. SYNAGIS [Suspect]
     Active Substance: PALIVIZUMAB
     Indication: PREMATURE BABY
     Dosage: 20 MG
     Route: 030
     Dates: start: 20101111, end: 20101111
  3. SYNAGIS [Suspect]
     Active Substance: PALIVIZUMAB
     Indication: PREMATURE BABY
     Dosage: 70 MG
     Route: 030
     Dates: start: 20110309, end: 20110309
  4. SYNAGIS [Suspect]
     Active Substance: PALIVIZUMAB
     Indication: PREMATURE BABY
     Dosage: 20 MG
     Route: 030
     Dates: start: 20101209, end: 20101209
  5. SYNAGIS [Suspect]
     Active Substance: PALIVIZUMAB
     Indication: PREMATURE BABY
     Dosage: 85 MG
     Route: 030
     Dates: start: 20110406, end: 20110406
  6. SYNAGIS [Suspect]
     Active Substance: PALIVIZUMAB
     Indication: PREMATURE BABY
     Dosage: 30 MG
     Route: 030
     Dates: start: 20110110, end: 20110110

REACTIONS (1)
  - Pneumonia [Recovered/Resolved]

NARRATIVE: CASE EVENT DATE: 20110216
